FAERS Safety Report 26040181 (Version 2)
Quarter: 2025Q4

REPORT INFORMATION
  Report Type: Spontaneous
  Country: US (occurrence: US)
  Receive Date: 20251113
  Receipt Date: 20251124
  Transmission Date: 20260117
  Serious: Yes (Hospitalization, Other)
  Sender: GILEAD
  Company Number: US-GILEAD-2025-0735918

PATIENT
  Age: 30 Year
  Sex: Male

DRUGS (6)
  1. YEZTUGO [Suspect]
     Active Substance: LENACAPAVIR SODIUM
     Indication: Prophylaxis against HIV infection
     Dosage: 927 MG
     Route: 058
     Dates: start: 20251104, end: 20251104
  2. YEZTUGO [Suspect]
     Active Substance: LENACAPAVIR SODIUM
     Indication: Prophylaxis against HIV infection
  3. YEZTUGO [Suspect]
     Active Substance: LENACAPAVIR SODIUM
     Indication: Prophylaxis against HIV infection
     Dosage: 600 MG
     Route: 048
     Dates: start: 20251104, end: 20251104
  4. YEZTUGO [Suspect]
     Active Substance: LENACAPAVIR SODIUM
     Indication: Prophylaxis against HIV infection
  5. CABOTEGRAVIR [Concomitant]
     Active Substance: CABOTEGRAVIR
  6. DOXYCYCLINE [Concomitant]
     Active Substance: DOXYCYCLINE
     Dosage: UNK
     Dates: start: 20240917

REACTIONS (4)
  - Hypertransaminasaemia [Unknown]
  - Abdominal pain [Recovering/Resolving]
  - Cholelithiasis [Recovered/Resolved]
  - Vomiting [Recovering/Resolving]

NARRATIVE: CASE EVENT DATE: 20251104
